APPROVED DRUG PRODUCT: DOPAMINE HYDROCHLORIDE IN DEXTROSE 5% IN PLASTIC CONTAINER
Active Ingredient: DOPAMINE HYDROCHLORIDE
Strength: 320MG/100ML
Dosage Form/Route: INJECTABLE;INJECTION
Application: N018826 | Product #003 | TE Code: AP
Applicant: HOSPIRA INC
Approved: Sep 30, 1983 | RLD: Yes | RS: Yes | Type: RX